FAERS Safety Report 12834064 (Version 1)
Quarter: 2016Q4

REPORT INFORMATION
  Report Type: Report from Study
  Country: US (occurrence: US)
  Receive Date: 20161010
  Receipt Date: 20161010
  Transmission Date: 20170207
  Serious: Yes (Hospitalization)
  Sender: FDA-Public Use
  Company Number: US-BIOGEN-2015BI042949

PATIENT
  Age: 28 Year
  Sex: Male
  Weight: 109.87 kg

DRUGS (8)
  1. BG00012 [Suspect]
     Active Substance: DIMETHYL FUMARATE
     Route: 048
     Dates: start: 20141217
  2. CIALIS [Concomitant]
     Active Substance: TADALAFIL
     Indication: ERECTILE DYSFUNCTION
     Route: 065
  3. GABAPENTIN. [Concomitant]
     Active Substance: GABAPENTIN
     Indication: NEURALGIA
     Route: 065
  4. VITAMIN E [Concomitant]
     Active Substance: .ALPHA.-TOCOPHEROL
     Indication: SUPPLEMENTATION THERAPY
     Route: 065
  5. BG00012 [Suspect]
     Active Substance: DIMETHYL FUMARATE
     Indication: MULTIPLE SCLEROSIS
     Route: 048
     Dates: start: 20110120
  6. ADDERALL [Concomitant]
     Active Substance: AMPHETAMINE ASPARTATE\AMPHETAMINE SULFATE\DEXTROAMPHETAMINE SACCHARATE\DEXTROAMPHETAMINE SULFATE
     Indication: COGNITIVE DISORDER
     Route: 065
  7. OMEGA-3 ACIDS [Concomitant]
     Active Substance: OMEGA-3 FATTY ACIDS
     Indication: SUPPLEMENTATION THERAPY
     Route: 065
  8. CHOLECALCIFEROL [Concomitant]
     Active Substance: CHOLECALCIFEROL
     Indication: SUPPLEMENTATION THERAPY
     Route: 065

REACTIONS (1)
  - Multiple sclerosis relapse [Recovered/Resolved]

NARRATIVE: CASE EVENT DATE: 20150317
